FAERS Safety Report 8332872-2 (Version None)
Quarter: 2012Q2

REPORT INFORMATION
  Report Type: 
  Country: None (occurrence: None)
  Receive Date: 20120503
  Receipt Date: 20120426
  Transmission Date: 20120825
  Serious: Yes (Hospitalization)
  Sender: FDA-Public Use
  Company Number: US-BAYER-2012-018559

PATIENT
  Age: 41 Year
  Sex: Female
  Weight: 128 kg

DRUGS (11)
  1. YAZ [Suspect]
  2. AVANDIA [Concomitant]
     Dosage: 04 MG, UNK
     Route: 048
  3. LISINOPRIL [Concomitant]
     Dosage: DAILY DOSE 5 MG
  4. FUROSEMIDE [Concomitant]
     Route: 048
  5. TOPAMAX [Concomitant]
     Dosage: DAILY DOSE 100 MG
  6. IRON [Concomitant]
  7. YASMIN [Suspect]
     Dosage: UNK
  8. IBUPROFEN [Concomitant]
     Dosage: 800 MG, UNK
  9. COLACE [Concomitant]
  10. POTASSIUM CHLORIDE [Concomitant]
     Route: 048
  11. CLOTRIMAZOLE AND BETAMETHASONE DIPROPIONATE [Concomitant]
     Dosage: 45 G, UNK
     Route: 061

REACTIONS (5)
  - DEEP VEIN THROMBOSIS [None]
  - EMOTIONAL DISTRESS [None]
  - PULMONARY EMBOLISM [None]
  - INJURY [None]
  - PAIN [None]
